FAERS Safety Report 9641931 (Version 4)
Quarter: 2014Q1

REPORT INFORMATION
  Report Type: Spontaneous
  Country: JP (occurrence: JP)
  Receive Date: 20131023
  Receipt Date: 20140210
  Transmission Date: 20141002
  Serious: Yes (Other)
  Sender: FDA-Public Use
  Company Number: JP-PFIZER INC-2013298046

PATIENT
  Age: 84 Year
  Sex: Female
  Weight: 35 kg

DRUGS (11)
  1. REVATIO [Suspect]
     Indication: PULMONARY HYPERTENSION
     Dosage: 20 MG, 3X/DAY
     Route: 048
     Dates: start: 20101013
  2. HANP [Interacting]
     Indication: NEPHROPROTECTIVE THERAPY
     Dosage: 0.02 UG/KG/MIN
     Route: 042
     Dates: start: 20101026, end: 20101026
  3. HANP [Interacting]
     Indication: RENAL IMPAIRMENT
  4. MILRINONE [Interacting]
     Indication: PULMONARY HYPERTENSION
     Dosage: 0.25 UG/KG/MIN
     Route: 042
     Dates: start: 20101026, end: 20101026
  5. WARFARIN [Concomitant]
     Indication: PULMONARY EMBOLISM
     Dosage: 1.5 MG/DAY
     Route: 048
  6. BERAPROST SODIUM [Concomitant]
     Indication: PULMONARY EMBOLISM
     Dosage: 60 UG/DAY
     Route: 048
  7. HEPARIN [Concomitant]
     Indication: PULMONARY EMBOLISM
     Dosage: 10000 IU/DAY
  8. PROPOFOL [Concomitant]
     Indication: ANAESTHESIA PROCEDURE
     Dosage: UNK
  9. FENTANYL [Concomitant]
     Indication: ANAESTHESIA PROCEDURE
     Dosage: UNK
     Route: 042
  10. REMIFENTANIL [Concomitant]
     Indication: ANAESTHESIA PROCEDURE
     Dosage: UNK
     Route: 042
  11. ROCURONIUM BROMIDE [Concomitant]
     Indication: MUSCLE RELAXANT THERAPY
     Dosage: 30 MG, UNK

REACTIONS (2)
  - Drug interaction [Recovered/Resolved]
  - Hypotension [Recovered/Resolved]
